FAERS Safety Report 24027861 (Version 3)
Quarter: 2024Q4

REPORT INFORMATION
  Report Type: Spontaneous
  Country: US (occurrence: US)
  Receive Date: 20240628
  Receipt Date: 20241220
  Transmission Date: 20250115
  Serious: No
  Sender: PHARMING GROUP
  Company Number: US-PHARMING-PHAUS2024000509

PATIENT

DRUGS (4)
  1. RUCONEST [Suspect]
     Active Substance: CONESTAT ALFA
     Indication: Hereditary angioedema
     Dosage: 4200 IU, PRN
     Route: 042
     Dates: start: 202302
  2. RUCONEST [Suspect]
     Active Substance: CONESTAT ALFA
     Dosage: 4200 IU, PRN
     Route: 042
     Dates: start: 202302
  3. TAKHZYRO [Concomitant]
     Active Substance: LANADELUMAB-FLYO
     Indication: Product used for unknown indication
     Dosage: UNK
  4. TYSABRI [Concomitant]
     Active Substance: NATALIZUMAB
     Indication: Product used for unknown indication

REACTIONS (3)
  - Weight fluctuation [Unknown]
  - Product use in unapproved indication [Unknown]
  - Intentional product use issue [Unknown]
